FAERS Safety Report 7560742-6 (Version None)
Quarter: 2011Q2

REPORT INFORMATION
  Report Type: 
  Country: None (occurrence: None)
  Receive Date: 20110621
  Receipt Date: 20110614
  Transmission Date: 20111010
  Serious: Yes (Hospitalization)
  Sender: FDA-Public Use
  Company Number: GB-TEVA-267014ISR

PATIENT
  Age: 84 Year
  Sex: Female
  Weight: 62 kg

DRUGS (2)
  1. BUPRENORPHINE [Suspect]
     Indication: SPINAL FRACTURE
     Dosage: 240 MICROGRAM;
     Route: 062
     Dates: start: 20101213, end: 20110125
  2. DIAZEPAM [Suspect]
     Indication: ANXIETY
     Route: 048
     Dates: start: 20101018

REACTIONS (1)
  - DYSPNOEA [None]
